FAERS Safety Report 16309343 (Version 3)
Quarter: 2019Q2

REPORT INFORMATION
  Report Type: Spontaneous
  Country: FR (occurrence: FR)
  Receive Date: 20190514
  Receipt Date: 20190517
  Transmission Date: 20190711
  Serious: Yes (Other)
  Sender: FDA-Public Use
  Company Number: FR-PFIZER INC-2019199594

PATIENT
  Age: 14 Year
  Sex: Male
  Weight: 57 kg

DRUGS (2)
  1. HUMIRA [Suspect]
     Active Substance: ADALIMUMAB
     Indication: AUTOIMMUNE UVEITIS
     Dosage: 15 MG CYCLIC, (EVERY 15 DAYS)
     Route: 058
     Dates: start: 2015, end: 201903
  2. METHOTREXATE SODIUM. [Suspect]
     Active Substance: METHOTREXATE SODIUM
     Indication: AUTOIMMUNE UVEITIS
     Dosage: UNK
     Route: 048
     Dates: start: 2013, end: 2017

REACTIONS (3)
  - Product use in unapproved indication [Unknown]
  - Hodgkin^s disease nodular sclerosis stage III [Not Recovered/Not Resolved]
  - Off label use [Unknown]

NARRATIVE: CASE EVENT DATE: 2013
